FAERS Safety Report 24180694 (Version 1)
Quarter: 2024Q3

REPORT INFORMATION
  Report Type: Spontaneous
  Country: US (occurrence: None)
  Receive Date: 20240806
  Receipt Date: 20240806
  Transmission Date: 20241016
  Serious: Yes (Other)
  Sender: ASTRAZENECA
  Company Number: 2024A170078

PATIENT
  Sex: Female

DRUGS (1)
  1. SYMBICORT [Suspect]
     Active Substance: BUDESONIDE\FORMOTEROL FUMARATE DIHYDRATE
     Dosage: 160 UG,UNKNOWN UNKNOWN
     Route: 055

REACTIONS (15)
  - Road traffic accident [Unknown]
  - Post-traumatic neck syndrome [Unknown]
  - Oropharyngeal pain [Unknown]
  - Osteoporosis [Unknown]
  - Arthritis [Unknown]
  - Analgesic therapy [Unknown]
  - Irritable bowel syndrome [Unknown]
  - Impaired healing [Unknown]
  - Blood sodium decreased [Unknown]
  - Dizziness [Unknown]
  - Pulmonary pain [Unknown]
  - Incorrect dose administered by device [Unknown]
  - Device malfunction [Unknown]
  - Product use issue [Unknown]
  - Device use issue [Unknown]
